FAERS Safety Report 5708730-6 (Version None)
Quarter: 2008Q2

REPORT INFORMATION
  Report Type: 
  Country: None (occurrence: None)
  Receive Date: 20080417
  Receipt Date: 20080407
  Transmission Date: 20081010
  Serious: Yes (Other)
  Sender: FDA-Public Use
  Company Number: FI-ELI_LILLY_AND_COMPANY-FI200803006040

PATIENT
  Age: 38 Year
  Sex: Male

DRUGS (4)
  1. CYMBALTA [Suspect]
     Indication: DEPRESSION
     Dosage: 60 MG, UNKNOWN
     Route: 048
     Dates: end: 20080301
  2. CYMBALTA [Interacting]
     Dosage: 120 MG, DAILY (1/D)
     Route: 048
     Dates: start: 20080301
  3. CYMBALTA [Interacting]
     Dosage: 60 MG, UNKNOWN
     Route: 048
     Dates: start: 20080301
  4. LAMICTAL [Concomitant]
     Dosage: 50 MG, UNKNOWN
     Route: 065
     Dates: start: 20080301

REACTIONS (2)
  - DRUG INTERACTION [None]
  - HEPATIC ENZYME INCREASED [None]
